FAERS Safety Report 7037993-2 (Version None)
Quarter: 2010Q4

REPORT INFORMATION
  Report Type: 
  Country: None (occurrence: None)
  Receive Date: 20101011
  Receipt Date: 20101005
  Transmission Date: 20110411
  Serious: Yes (Hospitalization)
  Sender: FDA-Public Use
  Company Number: SE-AMGEN-QUU437939

PATIENT
  Sex: Female
  Weight: 83 kg

DRUGS (11)
  1. PROLIA [Suspect]
     Indication: OSTEOPOROSIS
     Route: 058
     Dates: start: 20100615
  2. BECOTIDE [Concomitant]
     Dates: start: 19980101
  3. SINGULAIR [Concomitant]
     Dates: start: 19990101
  4. ACETAMINOPHEN [Concomitant]
     Dates: start: 19900101
  5. TRAMADOL [Concomitant]
     Dates: start: 19900101
  6. ESOMEPRAZOLE [Concomitant]
     Dates: start: 20050101
  7. CALCIUM [Concomitant]
     Dates: start: 19950101
  8. VITAMIN D [Concomitant]
  9. ADRENALINE [Concomitant]
  10. UNSPECIFIED MEDICATION [Concomitant]
  11. LORATADINE [Concomitant]
     Dates: start: 19980101

REACTIONS (12)
  - ACTIVITIES OF DAILY LIVING IMPAIRED [None]
  - ASTHMA [None]
  - BACK PAIN [None]
  - CHEST DISCOMFORT [None]
  - CHEST PAIN [None]
  - DYSPNOEA [None]
  - ELECTROCARDIOGRAM ABNORMAL [None]
  - FATIGUE [None]
  - MALAISE [None]
  - MUSCLE SPASMS [None]
  - NASOPHARYNGITIS [None]
  - PULMONARY EMBOLISM [None]
